FAERS Safety Report 20900688 (Version 1)
Quarter: 2022Q2

REPORT INFORMATION
  Report Type: Spontaneous
  Country: NL (occurrence: NL)
  Receive Date: 20220601
  Receipt Date: 20220601
  Transmission Date: 20220720
  Serious: Yes (Other)
  Sender: FDA-Public Use
  Company Number: None

PATIENT
  Age: 46 Year
  Sex: Female
  Weight: 62 kg

DRUGS (3)
  1. TRAMADOL [Suspect]
     Active Substance: TRAMADOL
     Indication: Rib fracture
     Dosage: 3X A DAY WITH AN INTERVAL OF EIGHT HOURS 1 CAOSULE, 1 DAY, BRAND NAME NOT SPECIFIED, UNIT STRENGTH A
     Route: 065
     Dates: start: 20220502, end: 20220503
  2. TRAMADOL [Suspect]
     Active Substance: TRAMADOL
     Indication: Bone contusion
  3. DESOGESTREL [Concomitant]
     Active Substance: DESOGESTREL
     Dosage: COATED TABLET, 0.075 MG (MILLIGRAMS),THERAPY START DATE  AND  THERAPY END DATE : ASKED BUT UNKNOWN,

REACTIONS (10)
  - Arrhythmia [Not Recovered/Not Resolved]
  - Heart rate increased [Not Recovered/Not Resolved]
  - Swollen tongue [Not Recovered/Not Resolved]
  - Tongue dry [Not Recovered/Not Resolved]
  - Tongue pruritus [Not Recovered/Not Resolved]
  - Taste disorder [Not Recovered/Not Resolved]
  - Hypoacusis [Recovering/Resolving]
  - Paraesthesia [Recovering/Resolving]
  - Visual impairment [Recovering/Resolving]
  - Fatigue [Recovering/Resolving]

NARRATIVE: CASE EVENT DATE: 20220502
